FAERS Safety Report 8504525-9 (Version None)
Quarter: 2012Q3

REPORT INFORMATION
  Report Type: 
  Country: None (occurrence: None)
  Receive Date: 20120711
  Receipt Date: 20120704
  Transmission Date: 20120928
  Serious: Yes (Hospitalization)
  Sender: FDA-Public Use
  Company Number: DE-ROCHE-776714

PATIENT
  Sex: Male
  Weight: 62.2 kg

DRUGS (1)
  1. ROFERON-A [Suspect]
     Indication: RENAL CELL CARCINOMA
     Route: 058

REACTIONS (4)
  - BLOOD ALKALINE PHOSPHATASE INCREASED [None]
  - TRANSAMINASES INCREASED [None]
  - ANAEMIA [None]
  - HYPERBILIRUBINAEMIA [None]
